FAERS Safety Report 23780564 (Version 1)
Quarter: 2024Q2

REPORT INFORMATION
  Report Type: Spontaneous
  Country: ZA (occurrence: None)
  Receive Date: 20240425
  Receipt Date: 20240425
  Transmission Date: 20240716
  Serious: Yes (Hospitalization, Other)
  Sender: FDA-Public Use
  Company Number: 2024A094823

PATIENT
  Sex: Male

DRUGS (24)
  1. DAPAGLIFLOZIN PROPANEDIOL [Suspect]
     Active Substance: DAPAGLIFLOZIN PROPANEDIOL
     Indication: Type 2 diabetes mellitus
     Dosage: 10.0MG UNKNOWN
     Route: 048
  2. DYNA-LEVETIRACETAM [Concomitant]
     Indication: Epilepsy
     Dosage: 250.0MG UNKNOWN
     Route: 048
  3. SPIRACTIN [Concomitant]
     Indication: Hypertension
     Dosage: 25.0MG UNKNOWN
     Route: 048
  4. SPIRACTIN [Concomitant]
     Indication: Oedema
     Dosage: 25.0MG UNKNOWN
     Route: 048
  5. SPIRACTIN [Concomitant]
     Indication: Cardiac failure
     Dosage: 25.0MG UNKNOWN
     Route: 048
  6. SPIRACTIN [Concomitant]
     Indication: Hepatic cirrhosis
     Dosage: 25.0MG UNKNOWN
     Route: 048
  7. SPIRACTIN [Concomitant]
     Indication: Renal impairment
     Dosage: 25.0MG UNKNOWN
     Route: 048
  8. ESCITALOPRAM [Concomitant]
     Active Substance: ESCITALOPRAM OXALATE
     Indication: Hypertension
     Dosage: 20.0MG UNKNOWN
     Route: 048
  9. ESCITALOPRAM [Concomitant]
     Active Substance: ESCITALOPRAM OXALATE
     Indication: Obsessive-compulsive disorder
     Dosage: 20.0MG UNKNOWN
     Route: 048
  10. ESCITALOPRAM [Concomitant]
     Active Substance: ESCITALOPRAM OXALATE
     Indication: Anxiety disorder
     Dosage: 20.0MG UNKNOWN
     Route: 048
  11. ESCITALOPRAM [Concomitant]
     Active Substance: ESCITALOPRAM OXALATE
     Indication: Post-traumatic stress disorder
     Dosage: 20.0MG UNKNOWN
     Route: 048
  12. ESCITALOPRAM [Concomitant]
     Active Substance: ESCITALOPRAM OXALATE
     Indication: Decreased appetite
     Dosage: 20.0MG UNKNOWN
     Route: 048
  13. ESCITALOPRAM [Concomitant]
     Active Substance: ESCITALOPRAM OXALATE
     Indication: Bulimia nervosa
     Dosage: 20.0MG UNKNOWN
     Route: 048
  14. TORSEMIDE [Concomitant]
     Active Substance: TORSEMIDE
     Indication: Hypertension
     Dosage: 10.0MG UNKNOWN
     Route: 048
  15. TORSEMIDE [Concomitant]
     Active Substance: TORSEMIDE
     Indication: Oedema
     Dosage: 10.0MG UNKNOWN
     Route: 048
  16. TORSEMIDE [Concomitant]
     Active Substance: TORSEMIDE
     Indication: Cardiac failure
     Dosage: 10.0MG UNKNOWN
     Route: 048
  17. TORSEMIDE [Concomitant]
     Active Substance: TORSEMIDE
     Indication: Hepatic cirrhosis
     Dosage: 10.0MG UNKNOWN
     Route: 048
  18. TORSEMIDE [Concomitant]
     Active Substance: TORSEMIDE
     Indication: Renal impairment
     Dosage: 10.0MG UNKNOWN
     Route: 048
  19. BISOPROLOL FUMARATE [Concomitant]
     Active Substance: BISOPROLOL FUMARATE
     Indication: Arrhythmia
     Dosage: 5.0MG UNKNOWN
     Route: 048
  20. AMIODARONE HYDROCHLORIDE [Concomitant]
     Active Substance: AMIODARONE HYDROCHLORIDE
     Indication: Epilepsy
     Dosage: 100.0MG UNKNOWN
     Route: 048
  21. AMIODARONE HYDROCHLORIDE [Concomitant]
     Active Substance: AMIODARONE HYDROCHLORIDE
     Indication: Arrhythmia
     Dosage: 100.0MG UNKNOWN
     Route: 048
  22. MYSOLINE [Concomitant]
     Active Substance: PRIMIDONE
     Indication: Epilepsy
     Dosage: 250.0MG UNKNOWN
     Route: 048
  23. WARFARIN [Concomitant]
     Active Substance: WARFARIN
     Indication: Anticoagulant therapy
     Dosage: 5.0MG UNKNOWN
     Route: 048
  24. ALPRAZOLAM [Concomitant]
     Active Substance: ALPRAZOLAM
     Indication: Anxiety
     Dosage: 1.0MG UNKNOWN
     Route: 048

REACTIONS (2)
  - Blood viscosity abnormal [Unknown]
  - Oxygen saturation decreased [Unknown]
